FAERS Safety Report 8335385-7 (Version None)
Quarter: 2012Q2

REPORT INFORMATION
  Report Type: 
  Country: None (occurrence: None)
  Receive Date: 20120503
  Receipt Date: 20120427
  Transmission Date: 20120825
  Serious: Yes (Hospitalization)
  Sender: FDA-Public Use
  Company Number: US-MERCK-1204USA04579

PATIENT
  Age: 86 Year
  Sex: Female

DRUGS (3)
  1. FOSAMAX [Suspect]
     Route: 048
     Dates: start: 19980101, end: 20001009
  2. FOSAMAX [Suspect]
     Route: 048
     Dates: start: 20070101, end: 20080401
  3. FOSAMAX [Suspect]
     Route: 048
     Dates: start: 20010601, end: 20020101

REACTIONS (2)
  - FEMUR FRACTURE [None]
  - DEVICE BREAKAGE [None]
